FAERS Safety Report 7830001-2 (Version None)
Quarter: 2011Q4

REPORT INFORMATION
  Report Type: 
  Country: None (occurrence: None)
  Receive Date: 20111021
  Receipt Date: 20111012
  Transmission Date: 20120403
  Serious: Yes (Hospitalization, Other)
  Sender: FDA-Public Use
  Company Number: US-US-EMD SERONO, INC.-7089663

PATIENT
  Sex: Male

DRUGS (4)
  1. ANTI-ANXIETY MEDICATION [Concomitant]
  2. DEPRESSION MEDICATION [Concomitant]
  3. REBIF [Suspect]
     Indication: MULTIPLE SCLEROSIS
     Route: 058
     Dates: start: 20110803, end: 20110905
  4. REBIF [Suspect]
     Route: 058
     Dates: end: 20110905

REACTIONS (7)
  - SUICIDAL IDEATION [None]
  - HEAD INJURY [None]
  - ASTHENIA [None]
  - MULTIPLE SCLEROSIS RELAPSE [None]
  - FALL [None]
  - PYREXIA [None]
  - CHILLS [None]
